FAERS Safety Report 7623261-4 (Version None)
Quarter: 2011Q3

REPORT INFORMATION
  Report Type: 
  Country: None (occurrence: None)
  Receive Date: 20110720
  Receipt Date: 20110713
  Transmission Date: 20111222
  Serious: Yes (Life-Threatening, Hospitalization)
  Sender: FDA-Public Use
  Company Number: GB-ROCHE-534827

PATIENT
  Sex: Male
  Weight: 108 kg

DRUGS (18)
  1. ATENOLOL [Suspect]
     Route: 048
     Dates: start: 20071210, end: 20071216
  2. ACETAMINOPHEN [Concomitant]
     Route: 048
     Dates: start: 20071201, end: 20071219
  3. MEROPENEM [Concomitant]
     Route: 042
     Dates: start: 20071205, end: 20071212
  4. SIMVASTATIN [Suspect]
     Route: 048
     Dates: start: 20071210, end: 20071218
  5. OMEPRAZOLE [Concomitant]
     Route: 042
     Dates: start: 20071208, end: 20071212
  6. AMLODIPINE [Suspect]
     Route: 048
     Dates: start: 20071210, end: 20071215
  7. ONDANSETRON [Concomitant]
     Route: 042
     Dates: start: 20071202, end: 20071203
  8. BEVACIZUMAB [Suspect]
     Indication: COLON CANCER
     Route: 042
     Dates: start: 20071105
  9. ATENOLOL [Suspect]
     Indication: HYPERTENSION
     Dosage: OTHER INDICATION: CARDIAC;
     Route: 048
     Dates: end: 20071206
  10. SIMVASTATIN [Suspect]
     Indication: HYPERTENSION
     Dosage: OTHER INDICATION: CARDIAC;
     Route: 048
     Dates: start: 20000101, end: 20071205
  11. MORPHINE [Concomitant]
     Dosage: AS PER ALGORITHM
     Route: 058
     Dates: start: 20071201, end: 20071206
  12. CAPECITABINE [Suspect]
     Indication: COLON CANCER
     Route: 048
     Dates: start: 20071105
  13. ASPIRIN [Suspect]
     Indication: HYPERTENSION
     Dosage: OTHER INDICATION: CARDIAC;
     Route: 048
     Dates: end: 20071206
  14. ENOXAPARIN [Concomitant]
     Route: 058
     Dates: start: 20071201, end: 20071205
  15. ENOXAPARIN [Concomitant]
     Route: 058
     Dates: start: 20071210, end: 20071218
  16. AMLODIPINE [Suspect]
     Indication: HYPERTENSION
     Dosage: OTHER INDICATION: CARDIAC;
     Route: 048
     Dates: end: 20071206
  17. SODIUM CHLORIDE [Concomitant]
     Dates: start: 20071206
  18. LANSOPRAZOLE [Concomitant]
     Route: 048
     Dates: start: 20071213, end: 20071219

REACTIONS (2)
  - INTESTINAL ISCHAEMIA [None]
  - PANCREATITIS [None]
